FAERS Safety Report 5014725-0 (Version None)
Quarter: 2006Q2

REPORT INFORMATION
  Report Type: 
  Country: None (occurrence: None)
  Receive Date: 20060531
  Receipt Date: 20060323
  Transmission Date: 20061013
  Serious: Yes (Life-Threatening, Hospitalization, Disabling, Other)
  Sender: FDA-Public Use
  Company Number: BE-GLAXOSMITHKLINE-B0418912A

PATIENT
  Age: 73 Year
  Sex: Male
  Weight: 57.5 kg

DRUGS (4)
  1. AVODART [Suspect]
     Indication: PROSTATIC DISORDER
     Dosage: .5MG PER DAY
     Route: 048
     Dates: start: 20050501, end: 20060301
  2. ALLOPURINOL [Concomitant]
     Indication: GOUT
     Dosage: 300MG PER DAY
     Route: 048
  3. SERETIDE [Concomitant]
     Indication: CHRONIC RESPIRATORY DISEASE
     Route: 025
  4. BROMAZEPAM [Concomitant]
     Indication: SLEEP DISORDER THERAPY
     Dosage: .5TAB AT NIGHT
     Route: 048

REACTIONS (4)
  - BREAST CANCER [None]
  - GYNAECOMASTIA [None]
  - LYMPHADENOPATHY [None]
  - METASTASES TO LYMPH NODES [None]
